FAERS Safety Report 13243915 (Version 4)
Quarter: 2017Q3

REPORT INFORMATION
  Report Type: Spontaneous
  Country: US (occurrence: US)
  Receive Date: 20170216
  Receipt Date: 20170807
  Transmission Date: 20171127
  Serious: Yes (Hospitalization, Other)
  Sender: FDA-Public Use
  Company Number: US-JAZZ-2016-US-006101

PATIENT
  Age: 40 Year
  Sex: Female
  Weight: 84.35 kg

DRUGS (36)
  1. CLONIDINE. [Suspect]
     Active Substance: CLONIDINE
     Dosage: 4.17 ?G, QH
     Route: 037
     Dates: start: 20160129
  2. PRIALT [Suspect]
     Active Substance: ZICONOTIDE ACETATE
     Dosage: .139?G, QH
     Route: 037
     Dates: start: 20160316
  3. PRIALT [Suspect]
     Active Substance: ZICONOTIDE ACETATE
     Dosage: 0.132 ?G, QH
     Route: 037
     Dates: start: 20160523
  4. PRIALT [Suspect]
     Active Substance: ZICONOTIDE ACETATE
     Dosage: 0.151 ?G, QH
     Route: 037
     Dates: start: 20160915
  5. BUPIVACAINE. [Suspect]
     Active Substance: BUPIVACAINE
     Dosage: 0.333 MG, QH
     Route: 037
     Dates: start: 20160309
  6. BUPIVACAINE. [Suspect]
     Active Substance: BUPIVACAINE
     Dosage: 0.32 MG, QH
     Route: 037
     Dates: start: 20161222
  7. PRIALT [Suspect]
     Active Substance: ZICONOTIDE ACETATE
     Indication: PAIN
     Dosage: .082?G, QH
     Route: 037
     Dates: start: 20151231
  8. PRIALT [Suspect]
     Active Substance: ZICONOTIDE ACETATE
     Dosage: .111?G, QH
     Route: 037
     Dates: start: 20160309
  9. BUPIVACAINE. [Suspect]
     Active Substance: BUPIVACAINE
     Dosage: 0.38 MG, QH
     Route: 037
     Dates: start: 20160316
  10. BUPIVACAINE. [Suspect]
     Active Substance: BUPIVACAINE
     Dosage: 0.316 MG, QH
     Route: 037
     Dates: start: 20160818
  11. CLONIDINE. [Suspect]
     Active Substance: CLONIDINE
     Dosage: 4.438 ?G, QH
     Route: 037
     Dates: start: 20160309
  12. CLONIDINE. [Suspect]
     Active Substance: CLONIDINE
     Dosage: 5.314 ?G, QH
     Route: 037
     Dates: start: 20160523
  13. CLONIDINE. [Suspect]
     Active Substance: CLONIDINE
     Dosage: 3.45 ?G, QH
     Route: 037
     Dates: start: 20161222
  14. PRIALT [Suspect]
     Active Substance: ZICONOTIDE ACETATE
     Dosage: .127?G, QH
     Route: 037
     Dates: start: 20160422
  15. PRIALT [Suspect]
     Active Substance: ZICONOTIDE ACETATE
     Dosage: 0.151 ?G, QH
     Route: 037
     Dates: start: 20160902
  16. PRIALT [Suspect]
     Active Substance: ZICONOTIDE ACETATE
     Dosage: 0.153 ?G, QH
     Route: 037
     Dates: start: 20161222
  17. BUPIVACAINE. [Suspect]
     Active Substance: BUPIVACAINE
     Dosage: 0.398 MG, QH
     Route: 037
     Dates: start: 20160523
  18. BUPIVACAINE. [Suspect]
     Active Substance: BUPIVACAINE
     Dosage: 0.375 MG, QH
     Route: 037
     Dates: start: 20161230
  19. CLONIDINE. [Suspect]
     Active Substance: CLONIDINE
     Dosage: 5.06 ?G, QH
     Route: 037
     Dates: start: 20160316
  20. CLONIDINE. [Suspect]
     Active Substance: CLONIDINE
     Dosage: 4.215 ?G, QH
     Route: 037
     Dates: start: 20160818
  21. CLONIDINE. [Suspect]
     Active Substance: CLONIDINE
     Dosage: 4.215 ?G, QH
     Route: 037
     Dates: start: 20160915
  22. PRIALT [Suspect]
     Active Substance: ZICONOTIDE ACETATE
     Dosage: .104?G, QH
     Route: 037
     Dates: start: 20160129
  23. PRIALT [Suspect]
     Active Substance: ZICONOTIDE ACETATE
     Dosage: 0.156 ?G, QH
     Route: 037
     Dates: start: 20160810
  24. PRIALT [Suspect]
     Active Substance: ZICONOTIDE ACETATE
     Dosage: 0.179 ?G, QH
     Route: 037
     Dates: start: 20161230
  25. BUPIVACAINE. [Suspect]
     Active Substance: BUPIVACAINE
     Indication: PAIN
     Dosage: 0.329 MG, QH
     Route: 037
     Dates: start: 20151231
  26. BUPIVACAINE. [Suspect]
     Active Substance: BUPIVACAINE
     Dosage: 0.316 MG, QH
     Route: 037
     Dates: start: 20160902
  27. CLONIDINE. [Suspect]
     Active Substance: CLONIDINE
     Indication: PAIN
     Dosage: 4.389 ?G, QH
     Route: 037
     Dates: start: 20151231
  28. CLONIDINE. [Suspect]
     Active Substance: CLONIDINE
     Dosage: 4.215 ?G, QH
     Route: 037
     Dates: start: 20160902
  29. CLONIDINE. [Suspect]
     Active Substance: CLONIDINE
     Dosage: 4.04 ?G, QH
     Route: 037
     Dates: start: 20161230
  30. BUPIVACAINE. [Suspect]
     Active Substance: BUPIVACAINE
     Dosage: 0.313 MG, QH
     Route: 037
     Dates: start: 20160129
  31. CLONIDINE. [Suspect]
     Active Substance: CLONIDINE
     Dosage: 4.356 ?G, QH
     Route: 037
     Dates: start: 20160810
  32. PRIALT [Suspect]
     Active Substance: ZICONOTIDE ACETATE
     Dosage: 0.151 ?G, QH
     Route: 037
     Dates: start: 20160818
  33. BUPIVACAINE. [Suspect]
     Active Substance: BUPIVACAINE
     Dosage: 0.417 MG, QH
     Route: 037
     Dates: start: 20160316
  34. BUPIVACAINE. [Suspect]
     Active Substance: BUPIVACAINE
     Dosage: 0.327 MG, QH
     Route: 037
     Dates: start: 20160810
  35. BUPIVACAINE. [Suspect]
     Active Substance: BUPIVACAINE
     Dosage: 0.31 MG, QH
     Route: 037
     Dates: start: 20160915
  36. CLONIDINE. [Suspect]
     Active Substance: CLONIDINE
     Dosage: 5.556 ?G, QH
     Route: 037
     Dates: start: 20160316

REACTIONS (16)
  - Cholecystectomy [Unknown]
  - Medical device site pain [Recovered/Resolved]
  - Amnesia [Recovered/Resolved]
  - Device issue [Recovered/Resolved with Sequelae]
  - Pain [Recovered/Resolved]
  - Nausea [Recovered/Resolved]
  - Burning sensation [Recovered/Resolved]
  - Withdrawal syndrome [Recovered/Resolved]
  - Flank pain [Not Recovered/Not Resolved]
  - Depression [Recovered/Resolved]
  - Therapeutic response decreased [Not Recovered/Not Resolved]
  - Medical device site irritation [Recovered/Resolved]
  - Neuralgia [Recovered/Resolved]
  - Feeling abnormal [Recovered/Resolved]
  - Fatigue [Recovered/Resolved]
  - Vomiting [Recovered/Resolved]

NARRATIVE: CASE EVENT DATE: 20160129
